FAERS Safety Report 7323487-3 (Version None)
Quarter: 2011Q1

REPORT INFORMATION
  Report Type: 
  Country: None (occurrence: None)
  Receive Date: 20110301
  Receipt Date: 20110215
  Transmission Date: 20110831
  Serious: Yes (Hospitalization, Other)
  Sender: FDA-Public Use
  Company Number: US-ROCHE-734379

PATIENT
  Sex: Female
  Weight: 45.4 kg

DRUGS (1)
  1. ACCUTANE [Suspect]
     Indication: ACNE
     Route: 065
     Dates: start: 19820601, end: 19831231

REACTIONS (11)
  - INFLAMMATORY BOWEL DISEASE [None]
  - IRRITABLE BOWEL SYNDROME [None]
  - ADHESION [None]
  - RECTAL HAEMORRHAGE [None]
  - COLITIS ULCERATIVE [None]
  - ANAL STENOSIS [None]
  - ANAEMIA VITAMIN B12 DEFICIENCY [None]
  - POUCHITIS [None]
  - NAUSEA [None]
  - ABDOMINAL PAIN [None]
  - INTESTINAL STENOSIS [None]
